FAERS Safety Report 23570085 (Version 1)
Quarter: 2024Q1

REPORT INFORMATION
  Report Type: Spontaneous
  Country: CN (occurrence: CN)
  Receive Date: 20240227
  Receipt Date: 20240227
  Transmission Date: 20240410
  Serious: Yes (Other)
  Sender: FDA-Public Use
  Company Number: CN-SUN PHARMACEUTICAL INDUSTRIES LTD-2024R1-432933

PATIENT
  Age: 61 Year
  Sex: Male

DRUGS (2)
  1. CISPLATIN [Suspect]
     Active Substance: CISPLATIN
     Indication: Hyperthermic chemotherapy
     Dosage: UNK
     Route: 033
     Dates: start: 20210324
  2. DOXORUBICIN [Suspect]
     Active Substance: DOXORUBICIN
     Indication: Hyperthermic chemotherapy
     Dosage: UNK
     Route: 033
     Dates: start: 20210324

REACTIONS (1)
  - Condition aggravated [Unknown]
